FAERS Safety Report 4861010-3 (Version None)
Quarter: 2005Q4

REPORT INFORMATION
  Report Type: 
  Country: None (occurrence: None)
  Receive Date: 20051220
  Receipt Date: 20050824
  Transmission Date: 20060501
  Serious: No
  Sender: FDA-Public Use
  Company Number: US-GLAXOSMITHKLINE-A0571624A

PATIENT
  Sex: Female

DRUGS (11)
  1. TAGAMET [Suspect]
     Dosage: 800MG TWICE PER DAY
     Route: 048
  2. DIOVAN [Concomitant]
  3. ZOCOR [Concomitant]
  4. ATROVENT [Concomitant]
  5. ALBUTEROL [Concomitant]
  6. KOVAR [Concomitant]
  7. THYROID TAB [Concomitant]
  8. VITAMINS [Concomitant]
  9. UNKNOWN MEDICATION [Concomitant]
  10. MELATONIN [Concomitant]
  11. CAMOMILE [Concomitant]

REACTIONS (1)
  - VOMITING [None]
